FAERS Safety Report 18989639 (Version 1)
Quarter: 2021Q1

REPORT INFORMATION
  Report Type: Spontaneous
  Country: GB (occurrence: GB)
  Receive Date: 20210309
  Receipt Date: 20210309
  Transmission Date: 20210420
  Serious: Yes (Hospitalization, Other)
  Sender: FDA-Public Use
  Company Number: GB-GILEAD-2021-0520415

PATIENT
  Age: 46 Year
  Sex: Female

DRUGS (3)
  1. DAPSONE. [Suspect]
     Active Substance: DAPSONE
     Indication: PRODUCT USED FOR UNKNOWN INDICATION
     Dosage: STRENGTH 100, DOSE 1
     Route: 065
  2. ISENTRESS [Suspect]
     Active Substance: RALTEGRAVIR POTASSIUM
     Indication: PRODUCT USED FOR UNKNOWN INDICATION
     Dosage: STRENGTH 600, DOSE 2
     Route: 048
  3. EMTRIVA [Suspect]
     Active Substance: EMTRICITABINE
     Indication: PRODUCT USED FOR UNKNOWN INDICATION
     Dosage: STRENGTH 200/245, DOSE 1
     Route: 065

REACTIONS (1)
  - Lymphoma [Unknown]
